FAERS Safety Report 8373086-X (Version None)
Quarter: 2012Q2

REPORT INFORMATION
  Report Type: 
  Country: None (occurrence: None)
  Receive Date: 20120521
  Receipt Date: 20120510
  Transmission Date: 20120825
  Serious: Yes (Hospitalization)
  Sender: FDA-Public Use
  Company Number: RU-ASTRAZENECA-2012SE03712

PATIENT
  Age: 18939 Day
  Sex: Male

DRUGS (8)
  1. AZD6140 [Suspect]
     Indication: CORONARY ARTERY DISEASE
     Route: 048
     Dates: start: 20110831
  2. PREDUCTAL [Concomitant]
     Indication: IMPLANTABLE DEFIBRILLATOR INSERTION
     Route: 048
     Dates: end: 20120103
  3. ATORVASTATIN CALCIUM [Concomitant]
     Indication: HYPERLIPIDAEMIA
     Route: 048
  4. LOZAP-PLUS [Concomitant]
     Indication: HYPERTENSION
     Route: 048
     Dates: end: 20120127
  5. BISOPROLOL FUMARATE [Concomitant]
     Indication: IMPLANTABLE DEFIBRILLATOR INSERTION
     Route: 048
  6. ANTIGRIPPIN [Concomitant]
     Indication: RESPIRATORY TRACT INFECTION VIRAL
     Route: 048
     Dates: start: 20110127, end: 20120207
  7. AMLODIPINE [Concomitant]
     Indication: HYPERTENSION
     Route: 048
     Dates: end: 20120430
  8. ASPIRIN [Concomitant]
     Route: 048

REACTIONS (3)
  - GASTRIC ULCER [None]
  - CONDITION AGGRAVATED [None]
  - DUODENAL ULCER [None]
